FAERS Safety Report 18163710 (Version 4)
Quarter: 2020Q4

REPORT INFORMATION
  Report Type: Spontaneous
  Country: US (occurrence: US)
  Receive Date: 20200818
  Receipt Date: 20201016
  Transmission Date: 20210113
  Serious: Yes (Other)
  Sender: FDA-Public Use
  Company Number: US-GILEAD-2020-0490419

PATIENT
  Sex: Male
  Weight: 81.63 kg

DRUGS (27)
  1. ISENTRESS [Concomitant]
     Active Substance: RALTEGRAVIR POTASSIUM
     Indication: HIV INFECTION
  2. LEXIVA [Concomitant]
     Active Substance: FOSAMPRENAVIR CALCIUM
     Indication: HIV INFECTION
  3. AMITRIPTYLINE [Concomitant]
     Active Substance: AMITRIPTYLINE
  4. AMLODIPINE [Concomitant]
     Active Substance: AMLODIPINE BESYLATE
  5. VITAMINS NOS [Concomitant]
     Active Substance: VITAMINS
  6. CHOLESTYRAMINE. [Concomitant]
     Active Substance: CHOLESTYRAMINE
  7. GABAPENTIN. [Concomitant]
     Active Substance: GABAPENTIN
  8. LISINOPRIL. [Concomitant]
     Active Substance: LISINOPRIL
  9. EPIVIR [Concomitant]
     Active Substance: LAMIVUDINE
     Indication: HIV INFECTION
  10. METOPROLOL. [Concomitant]
     Active Substance: METOPROLOL
  11. PANTOPRAZOLE [Concomitant]
     Active Substance: PANTOPRAZOLE
  12. TRAVATAN [Concomitant]
     Active Substance: TRAVOPROST
  13. PREZISTA [Concomitant]
     Active Substance: DARUNAVIR ETHANOLATE
     Indication: HIV INFECTION
  14. SELZENTRY [Concomitant]
     Active Substance: MARAVIROC
     Indication: HIV INFECTION
  15. NAPROXEN. [Concomitant]
     Active Substance: NAPROXEN
  16. VITAMIN D3 [Concomitant]
     Active Substance: CHOLECALCIFEROL
  17. VIDEX EC [Concomitant]
     Active Substance: DIDANOSINE
     Indication: HIV INFECTION
  18. DAPSONE. [Concomitant]
     Active Substance: DAPSONE
  19. TRUVADA [Suspect]
     Active Substance: EMTRICITABINE\TENOFOVIR DISOPROXIL FUMARATE
     Dosage: UNK
     Route: 048
     Dates: start: 20070112, end: 2008
  20. FUZEON [Concomitant]
     Active Substance: ENFUVIRTIDE
     Indication: HIV INFECTION
  21. SUSTIVA [Concomitant]
     Active Substance: EFAVIRENZ
     Indication: HIV INFECTION
  22. EPZICOM [Concomitant]
     Active Substance: ABACAVIR SULFATE\LAMIVUDINE
     Indication: HIV INFECTION
  23. NORVIR [Concomitant]
     Active Substance: RITONAVIR
     Indication: HIV INFECTION
  24. ZERIT [Concomitant]
     Active Substance: STAVUDINE
     Indication: HIV INFECTION
  25. TRUVADA [Suspect]
     Active Substance: EMTRICITABINE\TENOFOVIR DISOPROXIL FUMARATE
     Indication: HIV INFECTION
     Dosage: UNK
     Route: 048
     Dates: start: 2004
  26. ALEVE [Concomitant]
     Active Substance: NAPROXEN SODIUM
  27. TYLENOL [Concomitant]
     Active Substance: ACETAMINOPHEN

REACTIONS (5)
  - Foot fracture [Recovered/Resolved]
  - Pain [Unknown]
  - Osteoporosis [Not Recovered/Not Resolved]
  - Emotional distress [Unknown]
  - Bone density decreased [Unknown]

NARRATIVE: CASE EVENT DATE: 2008
